FAERS Safety Report 14543399 (Version 1)
Quarter: 2018Q1

REPORT INFORMATION
  Report Type: Report from Study
  Country: AU (occurrence: AU)
  Receive Date: 20180216
  Receipt Date: 20180216
  Transmission Date: 20180509
  Serious: Yes (Hospitalization)
  Sender: FDA-Public Use
  Company Number: AU-TOLMAR, INC.-2018AU001709

PATIENT

DRUGS (3)
  1. ELIGARD [Suspect]
     Active Substance: LEUPROLIDE ACETATE
     Indication: PROSTATE CANCER
     Dosage: 22.5 MG, Q3MONTHS
     Route: 065
     Dates: start: 20171113
  2. MAGNESIUM [Concomitant]
     Active Substance: MAGNESIUM
  3. VITAMINS                           /00067501/ [Concomitant]
     Active Substance: VITAMINS

REACTIONS (3)
  - Fall [Unknown]
  - Decreased appetite [Unknown]
  - Fluid intake reduced [Unknown]
